FAERS Safety Report 25258215 (Version 1)
Quarter: 2025Q2

REPORT INFORMATION
  Report Type: Spontaneous
  Country: US (occurrence: US)
  Receive Date: 20250501
  Receipt Date: 20250501
  Transmission Date: 20250716
  Serious: No
  Sender: BAUSCH AND LOMB
  Company Number: US-BAUSCHBL-2025BNL002859

PATIENT
  Age: 43 Year
  Sex: Female
  Weight: 61 kg

DRUGS (2)
  1. MIEBO [Suspect]
     Active Substance: PERFLUOROHEXYLOCTANE
     Indication: Product used for unknown indication
     Dosage: STARTED 4 MONTHS AGO
     Route: 047
     Dates: start: 202412
  2. ARTIFICIAL TEARS [CARMELLOSE SODIUM] [Concomitant]
     Indication: Product used for unknown indication
     Route: 065

REACTIONS (5)
  - Vision blurred [Recovered/Resolved]
  - Wrong technique in product usage process [Unknown]
  - Intentional product use issue [Unknown]
  - Therapy interrupted [Unknown]
  - Product delivery mechanism issue [Unknown]
